FAERS Safety Report 8620545-8 (Version None)
Quarter: 2012Q3

REPORT INFORMATION
  Report Type: 
  Country: None (occurrence: None)
  Receive Date: 20120824
  Receipt Date: 20120821
  Transmission Date: 20120928
  Serious: No
  Sender: FDA-Public Use
  Company Number: US-PFIZER INC-2012156990

PATIENT
  Age: 87 Year
  Sex: Female
  Weight: 60.771 kg

DRUGS (2)
  1. PREMARIN [Suspect]
     Indication: VULVOVAGINAL PAIN
     Dosage: UNK
     Route: 067
     Dates: start: 20120709
  2. PREMARIN [Suspect]
     Indication: VULVOVAGINAL DISCOMFORT

REACTIONS (2)
  - VULVOVAGINAL PAIN [None]
  - VULVOVAGINAL DISCOMFORT [None]
